FAERS Safety Report 6115568-7 (Version None)
Quarter: 2009Q1

REPORT INFORMATION
  Report Type: 
  Country: None (occurrence: None)
  Receive Date: 20090313
  Receipt Date: 20090305
  Transmission Date: 20090719
  Serious: Yes (Other)
  Sender: FDA-Public Use
  Company Number: PHHY2009DE08330

PATIENT
  Sex: Male

DRUGS (5)
  1. EXJADE [Suspect]
     Indication: HAEMOSIDEROSIS
     Dosage: UNK
     Route: 048
     Dates: start: 20061201
  2. CORTISONE [Concomitant]
  3. LEVODOPA [Concomitant]
  4. SIFROL [Concomitant]
  5. ASPIRIN [Concomitant]

REACTIONS (3)
  - ALVEOLITIS [None]
  - DYSPNOEA [None]
  - IDIOPATHIC PULMONARY FIBROSIS [None]
